FAERS Safety Report 6568222-1 (Version None)
Quarter: 2010Q1

REPORT INFORMATION
  Report Type: 
  Country: None (occurrence: None)
  Receive Date: 20100203
  Receipt Date: 20100127
  Transmission Date: 20100710
  Serious: Yes (Death, Other)
  Sender: FDA-Public Use
  Company Number: JP-ROCHE-682682

PATIENT
  Age: 58 Year
  Sex: Male

DRUGS (9)
  1. DENOSINE IV [Suspect]
     Indication: CYTOMEGALOVIRUS INFECTION
     Dosage: FORM: INFUSION
     Route: 042
  2. MYCOPHENOLATE MOFETIL [Suspect]
     Indication: GRAFT VERSUS HOST DISEASE
     Route: 065
  3. CYCLOSPORINE [Concomitant]
     Indication: THROMBOTIC MICROANGIOPATHY
  4. PREDNISOLONE [Concomitant]
     Indication: GRAFT VERSUS HOST DISEASE
  5. PREDNISOLONE [Concomitant]
     Dosage: TAPERED
  6. PREDNISOLONE [Concomitant]
     Dosage: DOSE INCREASED
  7. PREDNISOLONE [Concomitant]
     Dosage: TAPERED
  8. PREDNISOLONE [Concomitant]
     Dosage: DOSE INCREASED
  9. FOSCARNET [Concomitant]

REACTIONS (3)
  - CEREBRAL HAEMORRHAGE [None]
  - CYTOMEGALOVIRUS INFECTION [None]
  - EPSTEIN-BARR VIRUS ASSOCIATED LYMPHOPROLIFERATIVE DISORDER [None]
